FAERS Safety Report 20461572 (Version 1)
Quarter: 2022Q1

REPORT INFORMATION
  Report Type: Spontaneous
  Country: US (occurrence: US)
  Receive Date: 20220211
  Receipt Date: 20220211
  Transmission Date: 20220423
  Serious: Yes (Other)
  Sender: FDA-Public Use
  Company Number: US-MYLANLABS-2022M1011513

PATIENT
  Age: 34 Year
  Sex: Female

DRUGS (12)
  1. CETIRIZINE [Suspect]
     Active Substance: CETIRIZINE HYDROCHLORIDE
     Indication: Alopecia areata
     Dosage: UNK
     Route: 061
  2. CETIRIZINE [Suspect]
     Active Substance: CETIRIZINE HYDROCHLORIDE
     Indication: Dermatitis atopic
  3. KETOCONAZOLE [Suspect]
     Active Substance: KETOCONAZOLE
     Indication: Alopecia areata
     Dosage: SHAMPOO
     Route: 065
  4. KETOCONAZOLE [Suspect]
     Active Substance: KETOCONAZOLE
     Indication: Dermatitis atopic
  5. TRIAMCINOLONE [Suspect]
     Active Substance: TRIAMCINOLONE
     Indication: Alopecia areata
     Dosage: 10 MILLIGRAM/KILOGRAM
     Route: 026
  6. TRIAMCINOLONE [Suspect]
     Active Substance: TRIAMCINOLONE
     Indication: Dermatitis atopic
  7. FLUOCINONIDE [Suspect]
     Active Substance: FLUOCINONIDE
     Indication: Alopecia areata
     Dosage: UNK
     Route: 061
  8. FLUOCINONIDE [Suspect]
     Active Substance: FLUOCINONIDE
     Indication: Dermatitis atopic
  9. CAFFEINE [Suspect]
     Active Substance: CAFFEINE
     Indication: Alopecia areata
     Dosage: UNK UNK, QD
     Route: 065
  10. CAFFEINE [Suspect]
     Active Substance: CAFFEINE
     Indication: Dermatitis atopic
  11. CICLOPIROX [Suspect]
     Active Substance: CICLOPIROX
     Indication: Alopecia areata
     Dosage: SHAMPOO
     Route: 065
  12. CICLOPIROX [Suspect]
     Active Substance: CICLOPIROX
     Indication: Dermatitis atopic

REACTIONS (2)
  - Drug ineffective [Unknown]
  - Off label use [Unknown]
